FAERS Safety Report 13896633 (Version 1)
Quarter: 2017Q3

REPORT INFORMATION
  Report Type: Spontaneous
  Country: IL (occurrence: IL)
  Receive Date: 20170822
  Receipt Date: 20170822
  Transmission Date: 20171127
  Serious: Yes (Disabling)
  Sender: FDA-Public Use
  Company Number: None

PATIENT
  Age: 70 Year
  Sex: Female
  Weight: 88 kg

DRUGS (9)
  1. LEVOTHYROXINE. [Concomitant]
     Active Substance: LEVOTHYROXINE
  2. SIMVASTATIN. [Concomitant]
     Active Substance: SIMVASTATIN
  3. FAMOTIDINE. [Concomitant]
     Active Substance: FAMOTIDINE
  4. PROLIA [Concomitant]
     Active Substance: DENOSUMAB
  5. WARFARIN [Concomitant]
     Active Substance: WARFARIN
  6. TERBINEX [Suspect]
     Active Substance: TERBINAFINE HYDROCHLORIDE
     Indication: LOCALISED INFECTION
     Route: 048
     Dates: start: 20170706, end: 20170803
  7. TERBINEX [Suspect]
     Active Substance: TERBINAFINE HYDROCHLORIDE
     Indication: FUNGAL INFECTION
     Route: 048
     Dates: start: 20170706, end: 20170803
  8. AROMASIN [Concomitant]
     Active Substance: EXEMESTANE
  9. MACCUSHIELD GOLD [Concomitant]

REACTIONS (2)
  - Drug interaction [None]
  - Blood thyroid stimulating hormone increased [None]

NARRATIVE: CASE EVENT DATE: 20170731
